FAERS Safety Report 14265420 (Version 3)
Quarter: 2019Q2

REPORT INFORMATION
  Report Type: Spontaneous
  Country: FR (occurrence: FR)
  Receive Date: 20171208
  Receipt Date: 20190409
  Transmission Date: 20190711
  Serious: Yes (Hospitalization, Other)
  Sender: FDA-Public Use
  Company Number: FR-MYLANLABS-2017M1076251

PATIENT
  Age: 60 Year
  Sex: Female

DRUGS (5)
  1. FAMPRIDINE [Interacting]
     Active Substance: DALFAMPRIDINE
     Indication: MULTIPLE SCLEROSIS
     Dosage: 10 MG, TID
     Route: 065
  2. NITROFURANTOIN. [Concomitant]
     Active Substance: NITROFURANTOIN
     Indication: MULTIPLE SCLEROSIS
     Route: 065
  3. BACLOFEN. [Interacting]
     Active Substance: BACLOFEN
     Indication: MULTIPLE SCLEROSIS
     Dosage: DOSE REDUCED TO 30MG PER DAY
     Route: 065
  4. BIOTIN [Interacting]
     Active Substance: BIOTIN
     Indication: MULTIPLE SCLEROSIS
     Dosage: 100 MG THREE TIMES PER DAY
     Route: 048
     Dates: start: 2016
  5. OXYBUTYNIN. [Suspect]
     Active Substance: OXYBUTYNIN CHLORIDE
     Indication: MULTIPLE SCLEROSIS
     Route: 065

REACTIONS (2)
  - Status epilepticus [Recovering/Resolving]
  - Potentiating drug interaction [Recovering/Resolving]
